FAERS Safety Report 5939725-5 (Version None)
Quarter: 2008Q4

REPORT INFORMATION
  Report Type: 
  Country: None (occurrence: None)
  Receive Date: 20081030
  Receipt Date: 20081030
  Transmission Date: 20090506
  Serious: Yes (Disabling)
  Sender: FDA-Public Use
  Company Number: None

PATIENT
  Age: 72 Year
  Sex: Male
  Weight: 72.5755 kg

DRUGS (2)
  1. PACERONE [Suspect]
     Indication: ATRIAL FIBRILLATION
     Dosage: 200MG QD QD ORAL
     Route: 048
     Dates: start: 20010101
  2. SIMVASTATIN [Suspect]
     Indication: PROPHYLAXIS
     Dosage: 40 MG QD ORAL
     Route: 048
     Dates: start: 20070101, end: 20070901

REACTIONS (7)
  - ASTHENIA [None]
  - COORDINATION ABNORMAL [None]
  - FALL [None]
  - GAIT DISTURBANCE [None]
  - JOINT RANGE OF MOTION DECREASED [None]
  - MUSCLE SPASMS [None]
  - PARAESTHESIA [None]
